FAERS Safety Report 15460880 (Version 1)
Quarter: 2018Q4

REPORT INFORMATION
  Report Type: Spontaneous
  Country: SK (occurrence: SK)
  Receive Date: 20181003
  Receipt Date: 20181003
  Transmission Date: 20190204
  Serious: Yes (Hospitalization)
  Sender: FDA-Public Use
  Company Number: SK-MYLANLABS-2018M1072192

PATIENT
  Age: 30 Year
  Sex: Female
  Weight: 110 kg

DRUGS (4)
  1. VANCOMYCIN [Suspect]
     Active Substance: VANCOMYCIN
     Indication: POST PROCEDURAL FEVER
     Dosage: UNK
     Route: 042
  2. CEFEPIM [Suspect]
     Active Substance: CEFEPIME HYDROCHLORIDE
     Indication: POST PROCEDURAL FEVER
     Dosage: 2 G, UNK
     Route: 042
  3. PARACETAMOL [Suspect]
     Active Substance: ACETAMINOPHEN
     Indication: POST PROCEDURAL FEVER
     Dosage: UNK
     Route: 042
  4. LINEZOLID. [Suspect]
     Active Substance: LINEZOLID
     Indication: POST PROCEDURAL FEVER
     Dosage: 2 G, UNK
     Route: 042

REACTIONS (1)
  - Toxic skin eruption [Not Recovered/Not Resolved]
